FAERS Safety Report 8431987-8 (Version None)
Quarter: 2012Q2

REPORT INFORMATION
  Report Type: 
  Country: None (occurrence: None)
  Receive Date: 20120613
  Receipt Date: 20111102
  Transmission Date: 20120825
  Serious: No
  Sender: FDA-Public Use
  Company Number: US-ASTRAZENECA-2011SE66835

PATIENT
  Age: 71 Year
  Sex: Male

DRUGS (3)
  1. RHINOCORT [Suspect]
     Route: 045
  2. SYMBICORT [Suspect]
     Route: 055
  3. NEXIUM [Suspect]
     Route: 048

REACTIONS (6)
  - CHRONIC OBSTRUCTIVE PULMONARY DISEASE [None]
  - SLEEP APNOEA SYNDROME [None]
  - ASTHMA [None]
  - OESOPHAGEAL PAIN [None]
  - GASTROOESOPHAGEAL REFLUX DISEASE [None]
  - BRONCHITIS CHRONIC [None]
